FAERS Safety Report 25171545 (Version 1)
Quarter: 2025Q2

REPORT INFORMATION
  Report Type: Spontaneous
  Country: US (occurrence: US)
  Receive Date: 20250408
  Receipt Date: 20250408
  Transmission Date: 20250716
  Serious: No
  Sender: ALEXION PHARMACEUTICALS
  Company Number: US-AstraZeneca-CH-00843217A

PATIENT

DRUGS (4)
  1. TEZSPIRE [Suspect]
     Active Substance: TEZEPELUMAB-EKKO
     Route: 065
  2. TEZSPIRE [Suspect]
     Active Substance: TEZEPELUMAB-EKKO
  3. XOLAIR [Concomitant]
     Active Substance: OMALIZUMAB
     Route: 065
  4. BENADRYL [Concomitant]
     Active Substance: DIPHENHYDRAMINE HYDROCHLORIDE
     Indication: Pruritus
     Route: 065

REACTIONS (5)
  - Reflux laryngitis [Unknown]
  - Pruritus [Unknown]
  - Blood disorder [Unknown]
  - Blood immunoglobulin E decreased [Unknown]
  - Drug ineffective [Unknown]
